FAERS Safety Report 7137779-4 (Version None)
Quarter: 2010Q4

REPORT INFORMATION
  Report Type: 
  Country: None (occurrence: None)
  Receive Date: 20101206
  Receipt Date: 20101204
  Transmission Date: 20110411
  Serious: Yes (Death, Hospitalization)
  Sender: FDA-Public Use
  Company Number: PHHO2008TZ06005

PATIENT
  Age: 4 Year
  Sex: Female
  Weight: 16 kg

DRUGS (1)
  1. COARTEM [Suspect]
     Dosage: UNK
     Route: 048
     Dates: start: 20080406

REACTIONS (6)
  - CONDITION AGGRAVATED [None]
  - CONVULSION [None]
  - COUGH [None]
  - DYSPNOEA [None]
  - MALARIA [None]
  - SOMNOLENCE [None]
